FAERS Safety Report 7252872-3 (Version None)
Quarter: 2011Q1

REPORT INFORMATION
  Report Type: 
  Country: None (occurrence: None)
  Receive Date: 20110129
  Receipt Date: 20100329
  Transmission Date: 20110831
  Serious: No
  Sender: FDA-Public Use
  Company Number: US-ABBOTT-10P-163-0635146-00

PATIENT
  Sex: Female
  Weight: 63.56 kg

DRUGS (3)
  1. TREXALL [Concomitant]
     Indication: RHEUMATOID ARTHRITIS
  2. MOBIC [Concomitant]
     Indication: RHEUMATOID ARTHRITIS
  3. HUMIRA [Suspect]
     Indication: RHEUMATOID ARTHRITIS

REACTIONS (1)
  - INJECTION SITE HAEMATOMA [None]
